FAERS Safety Report 7598192-9 (Version None)
Quarter: 2011Q3

REPORT INFORMATION
  Report Type: 
  Country: None (occurrence: None)
  Receive Date: 20110708
  Receipt Date: 20110701
  Transmission Date: 20111222
  Serious: Yes (Hospitalization, Other)
  Sender: FDA-Public Use
  Company Number: NZ-ABBOTT-11P-118-0715617-00

PATIENT
  Sex: Male
  Weight: 90 kg

DRUGS (1)
  1. HUMIRA [Suspect]
     Indication: PSORIASIS
     Route: 058
     Dates: start: 20090903

REACTIONS (6)
  - FALL [None]
  - DRUG DOSE OMISSION [None]
  - JOINT INJURY [None]
  - DEEP VEIN THROMBOSIS [None]
  - THERAPEUTIC RESPONSE DECREASED [None]
  - CELLULITIS [None]
